FAERS Safety Report 8379228-4 (Version None)
Quarter: 2012Q2

REPORT INFORMATION
  Report Type: 
  Country: None (occurrence: None)
  Receive Date: 20120523
  Receipt Date: 20120515
  Transmission Date: 20120825
  Serious: Yes (Hospitalization)
  Sender: FDA-Public Use
  Company Number: US-US-EMD SERONO, INC.-7060459

PATIENT
  Sex: Female
  Weight: 63 kg

DRUGS (2)
  1. REBIF [Suspect]
     Indication: MULTIPLE SCLEROSIS
     Route: 058
     Dates: start: 20090504
  2. INHALER [Concomitant]
     Indication: ASTHMA

REACTIONS (6)
  - PNEUMONIA [None]
  - MYOCARDIAL INFARCTION [None]
  - HAEMORRHAGE [None]
  - PERONEAL NERVE PALSY [None]
  - CORONARY ARTERY OCCLUSION [None]
  - CARDIAC VALVE DISEASE [None]
